FAERS Safety Report 23749687 (Version 3)
Quarter: 2024Q2

REPORT INFORMATION
  Report Type: Report from Study
  Country: CR (occurrence: CR)
  Receive Date: 20240416
  Receipt Date: 20240530
  Transmission Date: 20240716
  Serious: Yes (Other)
  Sender: FDA-Public Use
  Company Number: CR-BIOGEN-2024BI01259931

PATIENT
  Age: 48 Year
  Sex: Female
  Weight: 103 kg

DRUGS (8)
  1. AVONEX [Suspect]
     Active Substance: INTERFERON BETA-1A
     Indication: Relapsing multiple sclerosis
     Route: 050
     Dates: start: 20240301
  2. AVONEX [Suspect]
     Active Substance: INTERFERON BETA-1A
  3. AVONEX [Suspect]
     Active Substance: INTERFERON BETA-1A
  4. AVONEX [Suspect]
     Active Substance: INTERFERON BETA-1A
  5. EPIVAL [Suspect]
     Active Substance: DIVALPROEX SODIUM
     Indication: Epilepsy
     Dosage: 2 PILLS IN THE MORNING, 2 PILLS AT 2 PM AND ONE AT NIGHT
     Route: 050
  6. EPIVAL [Suspect]
     Active Substance: DIVALPROEX SODIUM
     Dosage: 3 PILLS IN THE MORNING, 3 PILLS AT 2:00 P.M. AND 1 AT NIGHT
     Route: 050
  7. ENALAPRIL [Concomitant]
     Active Substance: ENALAPRIL
     Indication: Hypertension
     Route: 050
  8. PREDNISOLONE [Concomitant]
     Active Substance: PREDNISOLONE
     Indication: Noninfectious myelitis
     Route: 050

REACTIONS (7)
  - Drug interaction [Unknown]
  - Seizure [Recovered/Resolved]
  - Heart rate increased [Recovered/Resolved]
  - Ear discomfort [Not Recovered/Not Resolved]
  - Hypoaesthesia [Recovered/Resolved]
  - Asthenia [Recovered/Resolved]
  - Decreased appetite [Recovered/Resolved]

NARRATIVE: CASE EVENT DATE: 20240408
